FAERS Safety Report 7018455-5 (Version None)
Quarter: 2010Q3

REPORT INFORMATION
  Report Type: 
  Country: None (occurrence: None)
  Receive Date: 20100924
  Receipt Date: 20100915
  Transmission Date: 20110219
  Serious: Yes (Hospitalization)
  Sender: FDA-Public Use
  Company Number: DSU-2010-04880

PATIENT
  Sex: Male

DRUGS (1)
  1. TRIBENZOR (OLMESARTAN MEDOXOMIL AMLODIPINE, HYDROCHLOROTHIAZIDE) (TABL [Suspect]
     Indication: HYPERTENSION
     Dosage: PER ORAL
     Route: 048
     Dates: start: 20100101

REACTIONS (1)
  - CEREBROVASCULAR ACCIDENT [None]
